FAERS Safety Report 7660461-1 (Version None)
Quarter: 2011Q3

REPORT INFORMATION
  Report Type: 
  Country: None (occurrence: None)
  Receive Date: 20110805
  Receipt Date: 20110801
  Transmission Date: 20111222
  Serious: Yes (Death, Other)
  Sender: FDA-Public Use
  Company Number: US-ASTRAZENECA-2011SE24506

PATIENT
  Age: 38 Year
  Sex: Male

DRUGS (7)
  1. VICODIN [Concomitant]
     Dates: start: 20090721
  2. KLONOPIN [Concomitant]
     Dates: start: 20090804
  3. NASONEX [Concomitant]
     Dates: start: 20090721
  4. CHANTIX [Concomitant]
     Dates: start: 20090721
  5. ANDROGEL [Concomitant]
     Dates: start: 20090804
  6. SEROQUEL [Suspect]
     Route: 048
  7. LOTRIL [Concomitant]
     Dates: start: 20090804

REACTIONS (12)
  - TACHYPHRENIA [None]
  - INJURY [None]
  - CONVULSION [None]
  - DIABETES MELLITUS [None]
  - HALLUCINATION, VISUAL [None]
  - FAECAL INCONTINENCE [None]
  - VOMITING [None]
  - FORMICATION [None]
  - LOSS OF CONSCIOUSNESS [None]
  - SYNCOPE [None]
  - ANXIETY [None]
  - ROAD TRAFFIC ACCIDENT [None]
